FAERS Safety Report 21364427 (Version 2)
Quarter: 2022Q4

REPORT INFORMATION
  Report Type: Report from Study
  Country: IT (occurrence: IT)
  Receive Date: 20220922
  Receipt Date: 20221008
  Transmission Date: 20230113
  Serious: Yes (Other)
  Sender: FDA-Public Use
  Company Number: IT-TEVA-2022-IT-2074650

PATIENT
  Age: 80 Year
  Sex: Female

DRUGS (1)
  1. SUNITINIB [Suspect]
     Active Substance: SUNITINIB
     Indication: Thymic carcinoma
     Dosage: 37.5 MILLIGRAM DAILY; CONTINUOUS DAILY DOSING
     Route: 065

REACTIONS (1)
  - Neurotoxicity [Unknown]
